FAERS Safety Report 5496586-9 (Version None)
Quarter: 2007Q4

REPORT INFORMATION
  Report Type: 
  Country: None (occurrence: None)
  Receive Date: 20071025
  Receipt Date: 20070621
  Transmission Date: 20080405
  Serious: No
  Sender: FDA-Public Use
  Company Number: A0659239A

PATIENT
  Age: 64 Year
  Sex: Male

DRUGS (6)
  1. ADVAIR DISKUS 100/50 [Suspect]
     Indication: CHRONIC OBSTRUCTIVE PULMONARY DISEASE
     Dosage: 1PUFF TWICE PER DAY
     Route: 055
     Dates: start: 20061001, end: 20061101
  2. SPIRIVA [Concomitant]
  3. TOPROL-XL [Concomitant]
  4. ALTACE [Concomitant]
  5. PREVACID [Concomitant]
  6. PROTONIX [Concomitant]

REACTIONS (1)
  - PARAESTHESIA [None]
